FAERS Safety Report 4314638-3 (Version None)
Quarter: 2004Q1

REPORT INFORMATION
  Report Type: 
  Country: None (occurrence: None)
  Receive Date: 20040308
  Receipt Date: 20040219
  Transmission Date: 20041129
  Serious: Yes (Life-Threatening, Hospitalization)
  Sender: FDA-Public Use
  Company Number: 8004527

PATIENT
  Age: 7 Year
  Sex: Female
  Weight: 44 kg

DRUGS (8)
  1. KEPPRA [Suspect]
     Indication: EPILEPSY
     Dosage: 250 MG 2/ PO
     Route: 048
     Dates: start: 20000101
  2. ORFIRIL ^DESITIN^ [Suspect]
     Dosage: 1050 MG PC
     Dates: start: 19980101, end: 20031001
  3. ORFIRIL ^DESITIN^ [Suspect]
     Dosage: 900 MG PC
     Dates: start: 19980101, end: 20031001
  4. XANEF [Concomitant]
  5. LEVOTHYROXINE SODIUM [Concomitant]
  6. FORTECORTIN [Concomitant]
  7. BIOCARN [Concomitant]
  8. IBUPROFEN [Concomitant]

REACTIONS (13)
  - ACTIVATED PARTIAL THROMBOPLASTIN TIME PROLONGED [None]
  - ANOREXIA [None]
  - APLASTIC ANAEMIA [None]
  - BLOOD IMMUNOGLOBULIN G INCREASED [None]
  - DRUG LEVEL INCREASED [None]
  - EPISTAXIS [None]
  - GENERAL PHYSICAL HEALTH DETERIORATION [None]
  - HAEMATOMA [None]
  - IMMUNE SYSTEM DISORDER [None]
  - MITOGEN STIMULATION TEST ABNORMAL [None]
  - PANCYTOPENIA [None]
  - PETECHIAE [None]
  - PYREXIA [None]
